FAERS Safety Report 15222653 (Version 1)
Quarter: 2018Q3

REPORT INFORMATION
  Report Type: Spontaneous
  Country: JP (occurrence: JP)
  Receive Date: 20180731
  Receipt Date: 20180731
  Transmission Date: 20181010
  Serious: Yes (Hospitalization)
  Sender: FDA-Public Use
  Company Number: JP-JNJFOC-20180723355

PATIENT
  Age: 26 Year
  Sex: Female

DRUGS (2)
  1. ACETAMINOPHEN (APAP) [Suspect]
     Active Substance: ACETAMINOPHEN
     Indication: HEADACHE
     Route: 065
     Dates: start: 200403
  2. ACETAMINOPHEN (APAP) [Suspect]
     Active Substance: ACETAMINOPHEN
     Indication: HEADACHE
     Route: 065

REACTIONS (3)
  - Drug administration error [Unknown]
  - Hepatic failure [Recovering/Resolving]
  - Drug level increased [Recovering/Resolving]
